FAERS Safety Report 4637564-9 (Version None)
Quarter: 2005Q1

REPORT INFORMATION
  Report Type: 
  Country: None (occurrence: None)
  Receive Date: 20050325
  Receipt Date: 20041123
  Transmission Date: 20050727
  Serious: No
  Sender: FDA-Public Use
  Company Number: USA041184518

PATIENT
  Age: 62 Year
  Sex: Male

DRUGS (2)
  1. FORTEO [Suspect]
     Indication: OSTEOPOROSIS
     Dates: start: 20040901
  2. TESTOSTERONE [Concomitant]

REACTIONS (10)
  - ANOREXIA [None]
  - ANXIETY [None]
  - BACK PAIN [None]
  - DIZZINESS [None]
  - ECZEMA [None]
  - FATIGUE [None]
  - GASTROOESOPHAGEAL REFLUX DISEASE [None]
  - MUSCULAR WEAKNESS [None]
  - NAUSEA [None]
  - WEIGHT DECREASED [None]
